FAERS Safety Report 5252260-5 (Version None)
Quarter: 2007Q1

REPORT INFORMATION
  Report Type: 
  Country: None (occurrence: None)
  Receive Date: 20070301
  Receipt Date: 20070220
  Transmission Date: 20070707
  Serious: Yes (Hospitalization)
  Sender: FDA-Public Use
  Company Number: HQWYE714820DEC06

PATIENT
  Sex: Male

DRUGS (7)
  1. CORDARONE [Suspect]
     Indication: ARRHYTHMIA
     Dosage: NOT PROVIDED
     Route: 048
     Dates: start: 20040101, end: 20060101
  2. ISCOVER [Concomitant]
     Dosage: NOT PROVIDED
     Route: 048
  3. MEVINACOR [Concomitant]
     Dosage: NOT PROVIDED
     Route: 048
  4. ALLOPURINOL SODIUM [Concomitant]
     Dosage: NOT PROVIDED
     Route: 048
  5. PARIET [Concomitant]
     Dosage: NOT PROVIDED
     Route: 048
  6. METOPROLOL SUCCINATE [Concomitant]
     Dosage: NOT PROVIDED
     Route: 065
  7. INSIDON [Concomitant]
     Dosage: NOT PROVIDED
     Route: 048

REACTIONS (2)
  - PHOTOSENSITIVITY REACTION [None]
  - SKIN HYPERPIGMENTATION [None]
